FAERS Safety Report 15558896 (Version 1)
Quarter: 2018Q4

REPORT INFORMATION
  Report Type: Spontaneous
  Country: US (occurrence: US)
  Receive Date: 20181029
  Receipt Date: 20181029
  Transmission Date: 20190205
  Serious: No
  Sender: FDA-Public Use
  Company Number: US-ELI_LILLY_AND_COMPANY-US201810008542

PATIENT
  Sex: Female

DRUGS (2)
  1. TRULICITY [Suspect]
     Active Substance: DULAGLUTIDE
     Indication: DIABETES MELLITUS
     Dosage: 0.75 MG, UNKNOWN
     Route: 058
     Dates: start: 20181012
  2. CANNABIS SATIVA OIL [Suspect]
     Active Substance: CANNABIS SATIVA SUBSP. INDICA TOP
     Indication: PRODUCT USED FOR UNKNOWN INDICATION
     Dosage: 10 DF, BID (EACH MORNING AND EVENING)

REACTIONS (8)
  - Influenza like illness [Recovering/Resolving]
  - Feeling hot [Recovering/Resolving]
  - Feeling abnormal [Recovering/Resolving]
  - Pyrexia [Recovering/Resolving]
  - Nausea [Recovering/Resolving]
  - Insomnia [Recovering/Resolving]
  - Eating disorder [Recovering/Resolving]
  - Fatigue [Recovering/Resolving]
